FAERS Safety Report 16775390 (Version 1)
Quarter: 2019Q3

REPORT INFORMATION
  Report Type: Spontaneous
  Country: US (occurrence: US)
  Receive Date: 20190716
  Receipt Date: 20190716
  Transmission Date: 20191005
  Serious: No
  Sender: FDA-Public Use
  Company Number: None

PATIENT
  Age: 78 Year
  Sex: Female
  Weight: 68.95 kg

DRUGS (1)
  1. SENSODYNE RAPID RELIEF [Suspect]
     Active Substance: STANNOUS FLUORIDE
     Indication: HYPERAESTHESIA TEETH
     Dosage: ?          QUANTITY:1IN STRIP OF PASTE;?
     Route: 048
     Dates: start: 20190707, end: 20190707

REACTIONS (2)
  - Oral mucosal exfoliation [None]
  - Oral discomfort [None]

NARRATIVE: CASE EVENT DATE: 20190707
